FAERS Safety Report 16201854 (Version 1)
Quarter: 2019Q2

REPORT INFORMATION
  Report Type: Spontaneous
  Country: US (occurrence: US)
  Receive Date: 20190415
  Receipt Date: 20190415
  Transmission Date: 20190711
  Serious: Yes (Other)
  Sender: FDA-Public Use
  Company Number: None

PATIENT
  Age: 64 Year
  Sex: Female
  Weight: 99 kg

DRUGS (22)
  1. TUTMERIC CURCUMIN PIPINE [Concomitant]
  2. YUCCA [Concomitant]
  3. VITAMIN C [Concomitant]
     Active Substance: ASCORBIC ACID
  4. OMEGA 3 [Concomitant]
     Active Substance: OMEGA-3 FATTY ACIDS
  5. CHOLEST WISE [Concomitant]
  6. BILLBERRY FRUIT [Concomitant]
  7. LEVOTHYROXINE. [Concomitant]
     Active Substance: LEVOTHYROXINE
  8. ALOE VERA JUICE [Concomitant]
  9. GINGER. [Concomitant]
     Active Substance: GINGER
  10. FLAX XEED OIL [Concomitant]
  11. SOY LECITHIN [Concomitant]
     Active Substance: LECITHIN, SOYBEAN
  12. ALPHA LIPOIC ACID [Concomitant]
     Active Substance: .ALPHA.-LIPOIC ACID
  13. GINSENG [Concomitant]
     Active Substance: ASIAN GINSENG
  14. PSYLLIUM HUSK. [Concomitant]
     Active Substance: PSYLLIUM HUSK
  15. LICORICE ROOT [Concomitant]
     Active Substance: LICORICE
  16. THYROID [Concomitant]
     Active Substance: LEVOTHYROXINE\LIOTHYRONINE
  17. CINNAMON. [Concomitant]
     Active Substance: CINNAMON
  18. TRULICITY [Suspect]
     Active Substance: DULAGLUTIDE
     Indication: TYPE 2 DIABETES MELLITUS
     Dosage: ?          QUANTITY:1 INJECTION(S);OTHER FREQUENCY:WEEKLY;?
     Route: 030
     Dates: start: 20190408, end: 20190408
  19. ALFALFA [Concomitant]
     Active Substance: ALFALFA
  20. TEA [Concomitant]
     Active Substance: TEA LEAF
  21. GARLIC OIL [Concomitant]
     Active Substance: GARLIC OIL
  22. BITTER MELON [Concomitant]

REACTIONS (8)
  - Malaise [None]
  - Drug ineffective [None]
  - Nausea [None]
  - Vomiting [None]
  - Abnormal weight gain [None]
  - Dyspepsia [None]
  - Abdominal distension [None]
  - Fatigue [None]

NARRATIVE: CASE EVENT DATE: 20190410
